FAERS Safety Report 24935909 (Version 1)
Quarter: 2025Q1

REPORT INFORMATION
  Report Type: Report from Study
  Country: US (occurrence: US)
  Receive Date: 20250206
  Receipt Date: 20250206
  Transmission Date: 20250409
  Serious: Yes (Life-Threatening)
  Sender: EXELIXIS
  Company Number: US-EXELIXIS-EXL-2024-000529

PATIENT
  Sex: Female
  Weight: 17.9 kg

DRUGS (15)
  1. CABOMETYX [Suspect]
     Active Substance: CABOZANTINIB S-MALATE
     Indication: Neuroblastoma recurrent
     Dosage: 20 MG, QD
     Route: 048
     Dates: start: 20240221, end: 20240920
  2. CETIRIZINE [Concomitant]
     Active Substance: CETIRIZINE HYDROCHLORIDE
  3. DEXAMETHASONE [Concomitant]
     Active Substance: DEXAMETHASONE
  4. GABAPENTIN [Concomitant]
     Active Substance: GABAPENTIN
  5. LACTULOSE [Concomitant]
     Active Substance: LACTULOSE
  6. LIDOCAINE [Concomitant]
     Active Substance: LIDOCAINE
  7. LIDOCAINE AND PRILOCAINE [Concomitant]
     Active Substance: LIDOCAINE\PRILOCAINE
  8. METHADONE [Concomitant]
     Active Substance: METHADONE HYDROCHLORIDE
  9. NARCAN [Concomitant]
     Active Substance: NALOXONE HYDROCHLORIDE
  10. ONDANSETRON HYDROCHLORIDE [Concomitant]
     Active Substance: ONDANSETRON HYDROCHLORIDE
  11. OXYCODONE [Concomitant]
     Active Substance: OXYCODONE
  12. PediaSure Grow + Gain [Concomitant]
  13. PEPCID AC [Concomitant]
     Active Substance: FAMOTIDINE
  14. POLYETHYLENE GLYCOL [Concomitant]
     Active Substance: POLYETHYLENE GLYCOL
  15. SENNOSIDES [Concomitant]
     Active Substance: SENNOSIDES

REACTIONS (3)
  - Malignant neoplasm progression [Recovered/Resolved with Sequelae]
  - Drug ineffective [Recovered/Resolved with Sequelae]
  - Off label use [Unknown]
